FAERS Safety Report 4962143-3 (Version None)
Quarter: 2006Q2

REPORT INFORMATION
  Report Type: 
  Country: None (occurrence: None)
  Receive Date: 20060404
  Receipt Date: 20051215
  Transmission Date: 20061013
  Serious: Yes (Hospitalization)
  Sender: FDA-Public Use
  Company Number: US-MERCK-0512USA02599

PATIENT
  Age: 72 Year
  Sex: Female
  Weight: 80 kg

DRUGS (6)
  1. VIOXX [Suspect]
     Indication: ARTHRITIS
     Route: 048
     Dates: end: 20040101
  2. ZOCOR [Concomitant]
     Indication: BLOOD CHOLESTEROL INCREASED
     Route: 048
  3. AVANDIA [Concomitant]
     Route: 065
  4. VASOTEC RPD [Concomitant]
     Indication: HYPERTENSION
     Route: 048
  5. QUININE [Concomitant]
     Route: 065
  6. HUMULIN N [Concomitant]
     Indication: DIABETES MELLITUS
     Route: 065

REACTIONS (3)
  - DYSPEPSIA [None]
  - MYOCARDIAL INFARCTION [None]
  - RENAL DISORDER [None]
